FAERS Safety Report 5655254-0 (Version None)
Quarter: 2008Q1

REPORT INFORMATION
  Report Type: 
  Country: None (occurrence: None)
  Receive Date: 20080307
  Receipt Date: 20080228
  Transmission Date: 20080703
  Serious: No
  Sender: FDA-Public Use
  Company Number: B0496015A

PATIENT
  Age: 59 Year
  Sex: Female
  Weight: 73 kg

DRUGS (2)
  1. VALACYCLOVIR [Suspect]
     Indication: GENITAL HERPES
     Dosage: 1TAB PER DAY
     Route: 048
     Dates: start: 20071101, end: 20071201
  2. MILLEPERTUIS [Concomitant]

REACTIONS (3)
  - HAEMATOMA [None]
  - MEAN CELL HAEMOGLOBIN CONCENTRATION DECREASED [None]
  - MEAN CELL VOLUME INCREASED [None]
